FAERS Safety Report 5276246-X (Version None)
Quarter: 2007Q1

REPORT INFORMATION
  Report Type: 
  Country: None (occurrence: None)
  Receive Date: 20070326
  Receipt Date: 20070312
  Transmission Date: 20070707
  Serious: Yes (Other)
  Sender: FDA-Public Use
  Company Number: US-ELI_LILLY_AND_COMPANY-US200703002496

PATIENT
  Age: 40 Year
  Sex: Female

DRUGS (2)
  1. CYMBALTA [Suspect]
     Dosage: 60 MG, DAILY (1/D)
  2. CYMBALTA [Suspect]
     Dosage: 30 MG, DAILY (1/D)
     Dates: start: 20070101

REACTIONS (2)
  - LIVER FUNCTION TEST ABNORMAL [None]
  - VIRAL INFECTION [None]
